FAERS Safety Report 8558184-X (Version None)
Quarter: 2012Q3

REPORT INFORMATION
  Report Type: 
  Country: None (occurrence: None)
  Receive Date: 20120727
  Receipt Date: 20120727
  Transmission Date: 20120928
  Serious: Yes (Hospitalization)
  Sender: FDA-Public Use
  Company Number: None

PATIENT
  Sex: Female
  Weight: 86.1834 kg

DRUGS (1)
  1. FUNG NAIL PEN 25% UNDECYLENIC ACID KRAMER LABORATORIES [Suspect]
     Indication: ONYCHOMYCOSIS
     Dosage: AS DIRECTED 1 TIME
     Dates: start: 20120628, end: 20120628

REACTIONS (1)
  - APPLICATION SITE BURN [None]
